FAERS Safety Report 7942006-1 (Version None)
Quarter: 2011Q4

REPORT INFORMATION
  Report Type: 
  Country: None (occurrence: None)
  Receive Date: 20111114
  Receipt Date: 20110615
  Transmission Date: 20120403
  Serious: Yes (Disabling, Other)
  Sender: FDA-Public Use
  Company Number: 2011028064

PATIENT
  Age: 67 Year
  Sex: Female
  Weight: 71.6683 kg

DRUGS (22)
  1. MUCINEX [Concomitant]
  2. LOVASTATIN [Concomitant]
  3. DIPHENHYDRAMINE HCL [Concomitant]
  4. LANTUS [Concomitant]
  5. METFORMIN HCL [Concomitant]
  6. HIZENTRA [Suspect]
  7. MICARDIS [Concomitant]
  8. MULTIVITAMIN [Concomitant]
  9. HIZENTRA [Suspect]
  10. HIZENTRA [Suspect]
  11. AMLODIPINE [Concomitant]
  12. METOPROLOL TARTRATE [Concomitant]
  13. HIZENTRA [Suspect]
     Indication: IMMUNODEFICIENCY COMMON VARIABLE
     Dosage: SEE IMAGE
     Route: 058
     Dates: start: 20110302, end: 20110302
  14. HIZENTRA [Suspect]
     Indication: IMMUNODEFICIENCY COMMON VARIABLE
     Dosage: SEE IMAGE
     Route: 058
     Dates: start: 20110330, end: 20110330
  15. HIZENTRA [Suspect]
     Indication: IMMUNODEFICIENCY COMMON VARIABLE
     Dosage: SEE IMAGE
     Route: 058
     Dates: start: 20110302
  16. PULMICORT [Concomitant]
  17. FLUTICASONE PROPIONATE [Concomitant]
  18. CODEINE SULFATE [Concomitant]
  19. OMEPRAZOLE [Concomitant]
  20. EPIPEN [Concomitant]
  21. CLARINEX (NARINE) [Concomitant]
  22. PROAIR HFA (PROCATEROL HYDROCHLORIDE) [Concomitant]

REACTIONS (11)
  - BACK PAIN [None]
  - DIZZINESS [None]
  - DYSPNOEA [None]
  - PRURITUS [None]
  - TACHYCARDIA [None]
  - FLUSHING [None]
  - ANXIETY [None]
  - CHEST DISCOMFORT [None]
  - FATIGUE [None]
  - HYPERTENSION [None]
  - ASTHENIA [None]
